FAERS Safety Report 4333254-0 (Version None)
Quarter: 2004Q2

REPORT INFORMATION
  Report Type: 
  Country: None (occurrence: None)
  Receive Date: 20040405
  Receipt Date: 20040405
  Transmission Date: 20050107
  Serious: Yes (Other)
  Sender: FDA-Public Use
  Company Number: None

PATIENT
  Age: 43 Year
  Sex: Female
  Weight: 97.5234 kg

DRUGS (3)
  1. LEVAQUIN [Suspect]
     Indication: INFECTION PROPHYLAXIS
     Dates: start: 20040319, end: 20040323
  2. ELAVIL [Suspect]
     Indication: PAIN
     Dates: start: 19920227, end: 19920301
  3. NEURONTIN [Concomitant]

REACTIONS (29)
  - ABNORMAL BEHAVIOUR [None]
  - ANXIETY [None]
  - ATTENTION DEFICIT/HYPERACTIVITY DISORDER [None]
  - BIPOLAR DISORDER [None]
  - BLOOD PRESSURE ABNORMAL [None]
  - BRADYPHRENIA [None]
  - CARDIAC DISORDER [None]
  - CONFUSIONAL STATE [None]
  - DISORIENTATION [None]
  - DISTURBANCE IN ATTENTION [None]
  - DRUG INTERACTION [None]
  - DYSGRAPHIA [None]
  - FEELING ABNORMAL [None]
  - JUDGEMENT IMPAIRED [None]
  - LUNG DISORDER [None]
  - MALAISE [None]
  - MEMORY IMPAIRMENT [None]
  - MENTAL DISORDER [None]
  - MOOD ALTERED [None]
  - MUSCLE DISORDER [None]
  - MYOCARDIAL INFARCTION [None]
  - NERVOUS SYSTEM DISORDER [None]
  - PAIN [None]
  - POSTURE ABNORMAL [None]
  - RASH [None]
  - RENAL DISORDER [None]
  - SPEECH DISORDER [None]
  - SYNCOPE [None]
  - TREMOR [None]
